FAERS Safety Report 5646151-5 (Version None)
Quarter: 2008Q1

REPORT INFORMATION
  Report Type: 
  Country: None (occurrence: None)
  Receive Date: 20080229
  Receipt Date: 20080218
  Transmission Date: 20080703
  Serious: Yes (Other)
  Sender: FDA-Public Use
  Company Number: DK-PFIZER INC-2008017040

PATIENT
  Sex: Female
  Weight: 70 kg

DRUGS (2)
  1. CHANTIX [Suspect]
     Indication: SMOKING CESSATION THERAPY
     Route: 048
     Dates: start: 20071113, end: 20071228
  2. ALOPAM [Concomitant]
     Route: 048

REACTIONS (12)
  - CONSTIPATION [None]
  - COUGH [None]
  - DEPRESSION [None]
  - ERUCTATION [None]
  - EYE PAIN [None]
  - HEADACHE [None]
  - INSOMNIA [None]
  - MUSCLE RIGIDITY [None]
  - NAUSEA [None]
  - PHOTOPHOBIA [None]
  - RHINORRHOEA [None]
  - THROAT IRRITATION [None]
